FAERS Safety Report 25638047 (Version 1)
Quarter: 2025Q3

REPORT INFORMATION
  Report Type: Spontaneous
  Country: US (occurrence: US)
  Receive Date: 20250804
  Receipt Date: 20250804
  Transmission Date: 20251020
  Serious: Yes (Death, Life-Threatening, Hospitalization, Other)
  Sender: VELOXIS PHARMACEUTICALS
  Company Number: US-MLMSERVICE-20201211-2623665-1

PATIENT
  Age: 65 Year
  Sex: Male

DRUGS (6)
  1. TACROLIMUS [Suspect]
     Active Substance: TACROLIMUS
     Indication: Prophylaxis against transplant rejection
     Route: 065
  2. TACROLIMUS [Suspect]
     Active Substance: TACROLIMUS
     Indication: Immunosuppressant drug therapy
  3. MYCOPHENOLIC ACID [Suspect]
     Active Substance: MYCOPHENOLIC ACID
     Indication: Prophylaxis against transplant rejection
     Route: 065
  4. MYCOPHENOLIC ACID [Suspect]
     Active Substance: MYCOPHENOLIC ACID
     Indication: Immunosuppressant drug therapy
  5. PREDNISONE [Suspect]
     Active Substance: PREDNISONE
     Indication: Prophylaxis against transplant rejection
     Route: 065
  6. PREDNISONE [Suspect]
     Active Substance: PREDNISONE
     Indication: Immunosuppressant drug therapy

REACTIONS (22)
  - Multiple organ dysfunction syndrome [Fatal]
  - Tenosynovitis [Unknown]
  - Skin lesion [Unknown]
  - Failure to thrive [Unknown]
  - Mycobacterium haemophilum infection [Fatal]
  - Septic shock [Fatal]
  - Brain abscess [Fatal]
  - Osteomyelitis acute [Fatal]
  - Osteomyelitis chronic [Fatal]
  - Abscess [Unknown]
  - Acidosis [Unknown]
  - Pleural effusion [Unknown]
  - Urosepsis [Unknown]
  - Colitis [Unknown]
  - Clostridium difficile colitis [Unknown]
  - Scabies [Unknown]
  - Generalised oedema [Unknown]
  - Escherichia infection [Unknown]
  - Renal failure [Unknown]
  - Mental status changes [Unknown]
  - Sepsis syndrome [Unknown]
  - Cellulitis [Unknown]
